FAERS Safety Report 5641285-3 (Version None)
Quarter: 2008Q1

REPORT INFORMATION
  Report Type: 
  Country: None (occurrence: None)
  Receive Date: 20080227
  Receipt Date: 20070501
  Transmission Date: 20080703
  Serious: No
  Sender: FDA-Public Use
  Company Number: A0649229A

PATIENT
  Age: 49 Year
  Sex: Female

DRUGS (1)
  1. NICORETTE [Suspect]
     Indication: DRUG USE FOR UNKNOWN INDICATION
     Dates: start: 20070428, end: 20070428

REACTIONS (2)
  - FLATULENCE [None]
  - INTENTIONAL DRUG MISUSE [None]
